FAERS Safety Report 20824288 (Version 1)
Quarter: 2022Q2

REPORT INFORMATION
  Report Type: Report from Study
  Country: US (occurrence: US)
  Receive Date: 20220513
  Receipt Date: 20220513
  Transmission Date: 20220721
  Serious: Yes (Other)
  Sender: FDA-Public Use
  Company Number: US-BRISTOL-MYERS SQUIBB COMPANY-2022-027643

PATIENT
  Age: 88 Year
  Sex: Female
  Weight: 41 kg

DRUGS (1)
  1. REVLIMID [Suspect]
     Active Substance: LENALIDOMIDE
     Indication: Plasma cell myeloma
     Dosage: 14 DAYS DAILY USED 14 DAYS OFF
     Route: 048
     Dates: start: 202105

REACTIONS (2)
  - Blood pressure abnormal [Unknown]
  - Arthritis [Unknown]
